FAERS Safety Report 8669822 (Version 2)
Quarter: 2012Q4

REPORT INFORMATION
  Report Type: 
  Country: US (occurrence: US)
  Receive Date: 20120718
  Receipt Date: 20120830
  Transmission Date: 20130627
  Serious: Yes (Hospitalization)
  Sender: FDA-Public Use
  Company Number: US-PFIZER INC-2012171944

PATIENT
  Age: 73 Year
  Sex: Male
  Weight: 93 kg

DRUGS (8)
  1. NORVASC [Suspect]
     Indication: HYPERTENSION
     Dosage: 5 mg, 1x/day
     Route: 048
     Dates: start: 19980224
  2. NORVASC [Suspect]
     Dosage: 10 mg, 1x/day
     Route: 048
  3. NORVASC [Suspect]
     Dosage: 5 mg, 1x/day
     Route: 048
  4. METOPROLOL [Concomitant]
     Dosage: 25 mg, UNK
  5. PROTONIX [Concomitant]
     Dosage: 40 mg, UNK
  6. HYTRIN [Concomitant]
     Indication: BENIGN PROSTATIC HYPERPLASIA
     Dosage: 2 mg, 1x/day
  7. CLONIDINE [Concomitant]
     Indication: HYPERTENSION
     Dosage: 0.1 TID
     Dates: start: 2006, end: 20120427
  8. PROZAC [Concomitant]
     Indication: DEPRESSION
     Dosage: 10 mg, 2x/day
     Dates: start: 2006

REACTIONS (1)
  - Coronary artery stenosis [Recovering/Resolving]
